FAERS Safety Report 18641413 (Version 2)
Quarter: 2020Q4

REPORT INFORMATION
  Report Type: Other
  Country: FR (occurrence: FR)
  Receive Date: 20201221
  Receipt Date: 20201223
  Transmission Date: 20210114
  Serious: Yes (Hospitalization)
  Sender: FDA-Public Use
  Company Number: FR-ASTELLAS-2020US044155

PATIENT
  Age: 62 Year
  Sex: Female

DRUGS (2)
  1. PROGRAF [Suspect]
     Active Substance: TACROLIMUS
     Indication: RENAL TRANSPLANT
     Dosage: 7 MG, DAILY
     Route: 048
     Dates: start: 2009, end: 20200824
  2. SOMATOSTATINE [SOMATOSTATIN] [Interacting]
     Active Substance: SOMATOSTATIN
     Indication: LIVER TRANSPLANT
     Dosage: 4 MG, EVERY 1 HOUR
     Route: 042
     Dates: start: 20200820, end: 20200825

REACTIONS (2)
  - Drug interaction [Recovered/Resolved]
  - Overdose [Recovered/Resolved]

NARRATIVE: CASE EVENT DATE: 20200824
